FAERS Safety Report 7285213-6 (Version None)
Quarter: 2011Q1

REPORT INFORMATION
  Report Type: 
  Country: None (occurrence: None)
  Receive Date: 20110210
  Receipt Date: 20110131
  Transmission Date: 20110831
  Serious: Yes (Hospitalization)
  Sender: FDA-Public Use
  Company Number: US-SANOFI-AVENTIS-2011SA006432

PATIENT
  Sex: Female
  Weight: 47 kg

DRUGS (14)
  1. ASCORBIC ACID [Concomitant]
     Dates: start: 20090724
  2. LORAZEPAM [Concomitant]
     Dates: start: 20090804
  3. FUROSEMIDE [Suspect]
     Route: 048
     Dates: start: 20090501, end: 20100511
  4. AMBIEN [Concomitant]
     Dates: start: 20090804
  5. METOLAZONE [Concomitant]
     Dates: start: 20090724
  6. MULTI-VITAMINS [Concomitant]
     Dates: start: 20090725
  7. CORDARONE [Suspect]
     Indication: ATRIAL FIBRILLATION
     Route: 048
     Dates: start: 20100208, end: 20100511
  8. PAXIL [Concomitant]
     Dates: start: 20090804
  9. BLINDED THERAPY [Suspect]
     Indication: CARDIAC FAILURE CONGESTIVE
     Route: 048
     Dates: start: 20091002, end: 20100510
  10. WARFARIN SODIUM [Suspect]
     Indication: ATRIAL FIBRILLATION
     Route: 048
     Dates: start: 20090804, end: 20100511
  11. LISINOPRIL [Concomitant]
     Dates: start: 20100208
  12. ZINC SULFATE [Concomitant]
     Dates: start: 20090725
  13. POTASSIUM CHLORIDE [Concomitant]
     Dates: start: 20100208
  14. ASPIRIN [Concomitant]
     Dates: start: 20090804

REACTIONS (3)
  - DEHYDRATION [None]
  - COAGULOPATHY [None]
  - LIVER FUNCTION TEST ABNORMAL [None]
